FAERS Safety Report 5227575-7 (Version None)
Quarter: 2007Q1

REPORT INFORMATION
  Report Type: 
  Country: None (occurrence: None)
  Receive Date: 20070202
  Receipt Date: 20070125
  Transmission Date: 20070707
  Serious: Yes (Life-Threatening, Hospitalization)
  Sender: FDA-Public Use
  Company Number: CA-JNJFOC-20070107101

PATIENT
  Age: 57 Year
  Sex: Female

DRUGS (6)
  1. TOPAMAX [Suspect]
     Indication: MIGRAINE PROPHYLAXIS
  2. OLANZAPINE [Concomitant]
     Indication: BIPOLAR DISORDER
  3. VALPROIC ACID [Concomitant]
     Indication: BIPOLAR DISORDER
  4. LEVOTHYROXINE SODIUM [Concomitant]
     Indication: HYPOTHYROIDISM
  5. HUMULIN N [Concomitant]
     Indication: DIABETES MELLITUS INSULIN-DEPENDENT
  6. HUMULIN 70/30 [Concomitant]
     Indication: DIABETES MELLITUS INSULIN-DEPENDENT

REACTIONS (2)
  - ATRIOVENTRICULAR BLOCK COMPLETE [None]
  - CARDIAC ARREST [None]
